FAERS Safety Report 5019000-6 (Version None)
Quarter: 2006Q2

REPORT INFORMATION
  Report Type: 
  Country: None (occurrence: None)
  Receive Date: 20060606
  Receipt Date: 20060322
  Transmission Date: 20061013
  Serious: Yes (Hospitalization)
  Sender: FDA-Public Use
  Company Number: JP-JPN-A200601011

PATIENT
  Age: 36 Year
  Sex: Female

DRUGS (2)
  1. AUGMENTIN '125' [Suspect]
     Indication: TONSILLITIS
     Dosage: 1U PER DAY
     Route: 048
     Dates: start: 20060317, end: 20060317
  2. SURGAM [Suspect]
     Indication: TONSILLITIS
     Dosage: 1U PER DAY
     Route: 048
     Dates: start: 20060317, end: 20060317

REACTIONS (14)
  - ANAPHYLACTIC REACTION [None]
  - CONJUNCTIVAL HYPERAEMIA [None]
  - DIZZINESS [None]
  - DRUG INTERACTION [None]
  - DYSPNOEA [None]
  - GENERALISED ERYTHEMA [None]
  - HEADACHE [None]
  - PALPITATIONS [None]
  - PRURITUS [None]
  - SHOCK [None]
  - SNEEZING [None]
  - TACHYCARDIA [None]
  - URTICARIA [None]
  - WHEEZING [None]
